FAERS Safety Report 5078787-7 (Version None)
Quarter: 2006Q3

REPORT INFORMATION
  Report Type: 
  Country: None (occurrence: None)
  Receive Date: 20060809
  Receipt Date: 20060727
  Transmission Date: 20061208
  Serious: Yes (Life-Threatening)
  Sender: FDA-Public Use
  Company Number: PIR# 0607008

PATIENT
  Age: 62 Year
  Sex: Male

DRUGS (13)
  1. 0.9% NACL INJ. BRAUM , B. BRAUM MEDICAL INC. [Suspect]
  2. D5NS AND 20KCL [Concomitant]
  3. HYDROXYZINE [Concomitant]
  4. BETAMETHAZONE [Concomitant]
  5. CALCIUM GLUCONATE [Concomitant]
  6. DOCUSATE [Concomitant]
  7. COREG [Concomitant]
  8. LISINOPRIL [Concomitant]
  9. PLAVIX [Concomitant]
  10. ASPIRIN [Concomitant]
  11. REGULAR INSULIN [Concomitant]
  12. NITROSTET [Concomitant]
  13. IBUPROFEN [Concomitant]

REACTIONS (1)
  - RASH [None]
